FAERS Safety Report 25396057 (Version 4)
Quarter: 2025Q3

REPORT INFORMATION
  Report Type: Spontaneous
  Country: US (occurrence: US)
  Receive Date: 20250604
  Receipt Date: 20250723
  Transmission Date: 20251021
  Serious: No
  Sender: PFIZER
  Company Number: US-PFIZER INC-202500111623

PATIENT
  Age: 11 Year
  Sex: Male
  Weight: 26.304 kg

DRUGS (1)
  1. GENOTROPIN [Suspect]
     Active Substance: SOMATROPIN
     Indication: Growth hormone deficiency
     Dosage: 1.1 MG, DAILY (INJECTION)
     Dates: start: 202409

REACTIONS (1)
  - Device mechanical issue [Unknown]
